FAERS Safety Report 8798007 (Version 1)
Quarter: 2012Q4

REPORT INFORMATION
  Report Type: Spontaneous
  Country: US (occurrence: None)
  Receive Date: 20120914
  Receipt Date: 20120914
  Transmission Date: 20130627
  Serious: Yes (Other)
  Sender: FDA-Public Use
  Company Number: 2012HGS-003106

PATIENT
  Age: 59 Year
  Sex: Female
  Weight: 49.44 kg

DRUGS (11)
  1. BENLYSTA [Suspect]
     Dosage: 1 in 28 D
     Route: 041
     Dates: start: 20100502
  2. SYNTHROID (LEVOTHYROXINE SODIUM) LEVOTHYROXINE SODIUM) [Concomitant]
  3. AMITIZA (LUBIPROSTONE) (LUBIPROSTONE) [Concomitant]
  4. FOLIC ACID (FOLIC ACID) (FOLIC ACID) [Concomitant]
  5. VITAMIN D (ERGOCALCIFEROL) (ERGOCALCIFEROL) [Concomitant]
  6. VITAMIN A (RETINOL) (RETINOL) [Concomitant]
  7. ALBUTEROL (SALBUTAMOL) (SALBUTAMOL) [Concomitant]
  8. PROTONIX (PANTOPRAZOLE SODIUM SESQUIHYDRATE) (PANTOPRAZOLE SODIUM SESQUIHYDRATE) [Concomitant]
  9. RESTASIS (CICLOSPORIN) (CICLOSPORIN) [Concomitant]
  10. SALAGEN (PILOCARPINE HYDROCHLORIDE) (PILOCARPINE HYDROCHLORIDE) [Concomitant]
  11. IGGAMMAGARD (IMMUNOGLOBULIN) (IMMUNOGLOBULIN) [Concomitant]

REACTIONS (11)
  - Basal cell carcinoma [None]
  - Oropharyngeal pain [None]
  - Cough [None]
  - Rhinorrhoea [None]
  - Constipation [None]
  - Abdominal pain upper [None]
  - Pain in extremity [None]
  - Gravitational oedema [None]
  - Oedema peripheral [None]
  - Fluid retention [None]
  - Malaise [None]
